FAERS Safety Report 11649660 (Version 1)
Quarter: 2015Q4

REPORT INFORMATION
  Report Type: Spontaneous
  Country: US (occurrence: US)
  Receive Date: 20151021
  Receipt Date: 20151021
  Transmission Date: 20160304
  Serious: Yes (Other)
  Sender: FDA-Public Use
  Company Number: US-JNJFOC-20151010242

PATIENT

DRUGS (4)
  1. MOTEXAFIN GADOLINIUM [Suspect]
     Active Substance: MOTEXAFIN GADOLINIUM
     Indication: NEOPLASM
     Route: 042
  2. MOTEXAFIN GADOLINIUM [Suspect]
     Active Substance: MOTEXAFIN GADOLINIUM
     Indication: NEOPLASM
     Route: 042
  3. DOXORUBICIN HYDROCHLORIDE. [Suspect]
     Active Substance: DOXORUBICIN HYDROCHLORIDE
     Indication: NEOPLASM
     Route: 042
  4. MOTEXAFIN GADOLINIUM [Suspect]
     Active Substance: MOTEXAFIN GADOLINIUM
     Indication: NEOPLASM
     Route: 042

REACTIONS (22)
  - Bone marrow failure [Unknown]
  - Pyrexia [Unknown]
  - Productive cough [Unknown]
  - Alopecia [Unknown]
  - Nausea [Unknown]
  - Vomiting [Unknown]
  - Gamma-glutamyltransferase increased [Unknown]
  - Headache [Unknown]
  - Product use issue [Unknown]
  - Chills [Unknown]
  - Insomnia [Unknown]
  - Anaemia [Unknown]
  - Diarrhoea [Unknown]
  - Chromaturia [Unknown]
  - Toxicity to various agents [Unknown]
  - Decreased appetite [Unknown]
  - Skin discolouration [Unknown]
  - Neutropenia [Unknown]
  - Stomatitis [Unknown]
  - Dyspnoea [Unknown]
  - Fatigue [Unknown]
  - Off label use [Unknown]
